FAERS Safety Report 4314827-8 (Version None)
Quarter: 2004Q1

REPORT INFORMATION
  Report Type: 
  Country: None (occurrence: None)
  Receive Date: 20040308
  Receipt Date: 20040224
  Transmission Date: 20041129
  Serious: Yes (Hospitalization, Other)
  Sender: FDA-Public Use
  Company Number: HQWYE276624FEB04

PATIENT
  Age: 16 Year
  Sex: Female

DRUGS (4)
  1. IBUPROFEN AND PSEUDOEPHEDRINE HCL [Suspect]
     Dosage: 20 TABLETS X 1  ORAL
     Route: 048
     Dates: start: 20040105, end: 20040105
  2. DI-ANTALVIC DEXTROPROPOXYPHENE HYDROCHLORIDE/PARACETAMOL,) [Suspect]
     Dosage: 20 TABLETS X 1   ORAL
     Route: 048
     Dates: start: 20040105, end: 20040105
  3. KARDEGIC (ACETYLSALICYLATE LYSINE,) [Suspect]
     Dosage: 20 TABLETS X 1   ORAL
     Route: 048
     Dates: start: 20040105, end: 20040105
  4. ACETAMINOPHEN [Suspect]
     Dosage: 18 GRAMS X 1  ORAL
     Route: 048
     Dates: start: 20040105, end: 20040105

REACTIONS (5)
  - ANALGESIC DRUG LEVEL INCREASED [None]
  - BLOOD CHLORIDE INCREASED [None]
  - INTENTIONAL OVERDOSE [None]
  - METABOLIC ACIDOSIS [None]
  - SUICIDE ATTEMPT [None]
